FAERS Safety Report 18436151 (Version 2)
Quarter: 2020Q4

REPORT INFORMATION
  Report Type: Report from Study
  Country: US (occurrence: US)
  Receive Date: 20201028
  Receipt Date: 20201106
  Transmission Date: 20210114
  Serious: No
  Sender: FDA-Public Use
  Company Number: NVSC2020US288780

PATIENT
  Sex: Female

DRUGS (3)
  1. SANDOSTATIN LAR DEPOT [Suspect]
     Active Substance: OCTREOTIDE ACETATE
  2. SANDOSTATIN LAR DEPOT [Suspect]
     Active Substance: OCTREOTIDE ACETATE
  3. SANDOSTATIN LAR DEPOT [Suspect]
     Active Substance: OCTREOTIDE ACETATE
     Indication: PRODUCT USED FOR UNKNOWN INDICATION
     Dosage: UNK
     Route: 065

REACTIONS (14)
  - Fatigue [Unknown]
  - Injection site extravasation [Unknown]
  - Headache [Unknown]
  - Injection site pain [Unknown]
  - Injection site swelling [Unknown]
  - Arthralgia [Unknown]
  - Asthenia [Unknown]
  - Gait disturbance [Unknown]
  - Weight decreased [Unknown]
  - Fat tissue decreased [Unknown]
  - Pain [Unknown]
  - Back pain [Unknown]
  - Pyrexia [Unknown]
  - Abdominal pain [Unknown]
